FAERS Safety Report 7041932-8 (Version None)
Quarter: 2010Q4

REPORT INFORMATION
  Report Type: 
  Country: None (occurrence: None)
  Receive Date: 20101013
  Receipt Date: 20100420
  Transmission Date: 20110411
  Serious: No
  Sender: FDA-Public Use
  Company Number: US-ASTRAZENECA-2010SE17531

PATIENT
  Age: 73 Year
  Sex: Female
  Weight: 86.2 kg

DRUGS (6)
  1. SYMBICORT [Suspect]
     Indication: CHRONIC OBSTRUCTIVE PULMONARY DISEASE
     Dosage: 160 MCG
     Route: 055
     Dates: start: 20090301, end: 20100420
  2. NEXIUM [Concomitant]
  3. COMBIVENT [Concomitant]
  4. DIOVAN [Concomitant]
  5. METFORMIN [Concomitant]
  6. SERTRALINE HYDROCHLORIDE [Concomitant]

REACTIONS (6)
  - BRONCHITIS [None]
  - DEPRESSION [None]
  - DRUG DOSE OMISSION [None]
  - GLOSSODYNIA [None]
  - ORAL CANDIDIASIS [None]
  - SWOLLEN TONGUE [None]
